FAERS Safety Report 7774479-1 (Version None)
Quarter: 2011Q3

REPORT INFORMATION
  Report Type: 
  Country: None (occurrence: None)
  Receive Date: 20110923
  Receipt Date: 20110922
  Transmission Date: 20111222
  Serious: Yes (Hospitalization)
  Sender: FDA-Public Use
  Company Number: GB-ROCHE-788414

PATIENT
  Sex: Female
  Weight: 93 kg

DRUGS (4)
  1. DOCETAXEL [Suspect]
     Dosage: DOSE DECREASED
     Route: 042
     Dates: start: 20110729
  2. TRASTUZUMAB [Suspect]
     Dosage: LAST DOSE PRIOR TO SAE: 29 JULY 2011
     Route: 042
     Dates: start: 20110727
  3. DOCETAXEL [Suspect]
     Dosage: DOSE DECREASED
     Route: 042
     Dates: start: 20110701
  4. TRASTUZUMAB [Suspect]
     Dosage: DOSE HELD
     Route: 042
     Dates: start: 20110701

REACTIONS (3)
  - NEUTROPENIA [None]
  - NEUTROPENIC SEPSIS [None]
  - DIARRHOEA [None]
